FAERS Safety Report 21556373 (Version 3)
Quarter: 2023Q2

REPORT INFORMATION
  Report Type: Spontaneous
  Country: JP (occurrence: JP)
  Receive Date: 20221104
  Receipt Date: 20230411
  Transmission Date: 20230721
  Serious: Yes (Death, Hospitalization)
  Sender: FDA-Public Use
  Company Number: JP-SANOFI-2021SA109896

PATIENT
  Age: 2 Year
  Sex: Female
  Weight: 6.8 kg

DRUGS (35)
  1. SABRIL [Suspect]
     Active Substance: VIGABATRIN
     Indication: Infantile spasms
     Dosage: 175 MG, BID
     Route: 048
     Dates: start: 20191218, end: 20200109
  2. SABRIL [Suspect]
     Active Substance: VIGABATRIN
     Dosage: 200 MG, BID
     Route: 048
     Dates: start: 20200110, end: 20200116
  3. SABRIL [Suspect]
     Active Substance: VIGABATRIN
     Dosage: 290 MG, BID
     Route: 048
     Dates: start: 20200117, end: 20200201
  4. SABRIL [Suspect]
     Active Substance: VIGABATRIN
     Dosage: 350 MG, BID
     Route: 048
     Dates: start: 20200202, end: 20200315
  5. SABRIL [Suspect]
     Active Substance: VIGABATRIN
     Dosage: 450 MG, BID
     Route: 048
     Dates: start: 20200316, end: 20200507
  6. SABRIL [Suspect]
     Active Substance: VIGABATRIN
     Dosage: 500 MG, BID
     Route: 048
     Dates: start: 20200508, end: 20200706
  7. SABRIL [Suspect]
     Active Substance: VIGABATRIN
     Dosage: 550 MG, BID
     Route: 048
     Dates: start: 20200707, end: 20201008
  8. SABRIL [Suspect]
     Active Substance: VIGABATRIN
     Dosage: 600 MG, BID
     Route: 048
     Dates: start: 20201009, end: 20201227
  9. SABRIL [Suspect]
     Active Substance: VIGABATRIN
     Dosage: 650 MG, BID
     Route: 048
     Dates: start: 20201228, end: 20210106
  10. SABRIL [Suspect]
     Active Substance: VIGABATRIN
     Dosage: 300 MG, BID
     Route: 048
     Dates: start: 20210108, end: 20210127
  11. SABRIL [Suspect]
     Active Substance: VIGABATRIN
     Dosage: 250 MG, BID
     Route: 048
     Dates: start: 20210128, end: 20210513
  12. SABRIL [Suspect]
     Active Substance: VIGABATRIN
     Dosage: 200 MG, BID
     Route: 048
     Dates: start: 20210514
  13. CATAPRES [Concomitant]
     Active Substance: CLONIDINE HYDROCHLORIDE
     Indication: Product used for unknown indication
     Dosage: DAILY DOSE: 128 UG
     Route: 048
     Dates: end: 20210111
  14. CATAPRES [Concomitant]
     Active Substance: CLONIDINE HYDROCHLORIDE
     Dosage: DAILY DOSE: 142.5 UG
     Route: 048
     Dates: start: 20210112
  15. ARTANE [Concomitant]
     Active Substance: TRIHEXYPHENIDYL HYDROCHLORIDE
     Indication: Hypertonia
     Dosage: 1.5 MG TO 4 MG PER DAY
     Route: 048
     Dates: start: 20191217
  16. ENALAPRIL MALEATE [Concomitant]
     Active Substance: ENALAPRIL MALEATE
     Indication: Product used for unknown indication
     Dosage: 0.4 MG PER DAY
     Route: 048
     Dates: end: 20200716
  17. GABAPENTIN [Concomitant]
     Active Substance: GABAPENTIN
     Indication: Product used for unknown indication
     Dosage: DAILY DOSE: 525 MG
     Route: 048
     Dates: end: 20211205
  18. GABAPENTIN [Concomitant]
     Active Substance: GABAPENTIN
     Dosage: DAILY DOSE: 550 MG
     Route: 048
     Dates: start: 20211206
  19. BACLOFEN [Concomitant]
     Active Substance: BACLOFEN
     Indication: Product used for unknown indication
     Dosage: 10 MG TO 15 MG PER DAY
     Route: 048
  20. TIZANIDINE HYDROCHLORIDE [Concomitant]
     Active Substance: TIZANIDINE HYDROCHLORIDE
     Indication: Hypertonia
     Dosage: 2 MG PER DAY
     Route: 048
     Dates: end: 20200109
  21. TIZANIDINE HYDROCHLORIDE [Concomitant]
     Active Substance: TIZANIDINE HYDROCHLORIDE
     Dosage: 2.3 MG PER DAY
     Route: 048
     Dates: start: 20200110
  22. EPHEDRA SINICA STEM\HERBALS [Concomitant]
     Active Substance: EPHEDRA SINICA STEM\HERBALS
     Indication: Product used for unknown indication
     Dosage: 1 TO 2 G PER DAY
     Route: 048
  23. LEVODOPA [Concomitant]
     Active Substance: LEVODOPA
     Indication: Hypertonia
     Dosage: 0.06 G TO 0.12 G PER DAY
     Route: 048
  24. TRICLOFOS SODIUM [Concomitant]
     Active Substance: TRICLOFOS SODIUM
     Indication: Product used for unknown indication
     Dosage: DAILY DOSE: 6 ML
     Route: 048
     Dates: end: 20210225
  25. TRICLOFOS SODIUM [Concomitant]
     Active Substance: TRICLOFOS SODIUM
     Dosage: DAILY DOSE: 7 ML
     Route: 048
     Dates: start: 20210226
  26. VIMPAT [Concomitant]
     Active Substance: LACOSAMIDE
     Indication: Infantile spasms
     Dosage: DAILY DOSE: 45 MG
     Route: 048
     Dates: end: 20211205
  27. VIMPAT [Concomitant]
     Active Substance: LACOSAMIDE
     Dosage: DAILY DOSE: 60 MG
     Route: 048
     Dates: start: 20211206
  28. POLAPREZINC [Concomitant]
     Active Substance: POLAPREZINC
     Indication: Prophylaxis
     Dosage: 36 MG PER DAY
     Route: 048
     Dates: start: 20191209
  29. POLAPREZINC [Concomitant]
     Active Substance: POLAPREZINC
     Indication: Investigation
     Route: 048
  30. DIAZEPAM [Concomitant]
     Active Substance: DIAZEPAM
     Indication: Product used for unknown indication
     Dosage: 2.4 MG TO 3 MG PER DAY
     Route: 048
  31. MIYA-BM [Concomitant]
     Active Substance: CLOSTRIDIUM BUTYRICUM SPORES STRAIN M-55
     Indication: Prophylaxis
     Dosage: 0.6 MG PER DAY
     Route: 048
  32. MIYA-BM [Concomitant]
     Active Substance: CLOSTRIDIUM BUTYRICUM SPORES STRAIN M-55
     Indication: Investigation
  33. TAURINE [Concomitant]
     Active Substance: TAURINE
     Indication: Prophylaxis
     Dosage: 1.53 G PER DAY
     Route: 048
     Dates: start: 20200317
  34. TAURINE [Concomitant]
     Active Substance: TAURINE
     Indication: Investigation
  35. LAMOTRIGINE [Concomitant]
     Active Substance: LAMOTRIGINE
     Indication: Infantile spasms
     Dosage: DAILY DOSE: 2 MG
     Route: 048
     Dates: start: 20210830

REACTIONS (3)
  - Gastroenteritis [Fatal]
  - Increased bronchial secretion [Recovered/Resolved]
  - Hypertonia [Recovering/Resolving]

NARRATIVE: CASE EVENT DATE: 20191223
